FAERS Safety Report 7918546-8 (Version None)
Quarter: 2011Q4

REPORT INFORMATION
  Report Type: 
  Country: None (occurrence: None)
  Receive Date: 20111116
  Receipt Date: 20111110
  Transmission Date: 20120403
  Serious: Yes (Other)
  Sender: FDA-Public Use
  Company Number: US-MYLANLABS-2011S1021194

PATIENT
  Age: 47 Year
  Sex: Female

DRUGS (18)
  1. DIAZEPAM [Concomitant]
     Indication: ANXIETY
     Dosage: FOR PAIN AND ANXIETY
  2. MAGNESIUM [Concomitant]
     Dosage: 250MG TABLETS
  3. CITRACAL + D /01438101/ [Concomitant]
  4. DICLOFENAC SODIUM [Concomitant]
     Indication: PAIN
     Route: 061
  5. PROZAC [Concomitant]
     Indication: DEPRESSION
  6. ANTACID /00108001/ [Concomitant]
     Indication: GASTROOESOPHAGEAL REFLUX DISEASE
     Dosage: ACID REDUX
  7. FENTANYL-100 [Suspect]
     Indication: BACK PAIN
     Dosage: Q72H
     Route: 062
     Dates: start: 20060101, end: 20101230
  8. BENADRYL [Concomitant]
     Indication: PRURITUS
     Route: 061
  9. ANTIHISTAMINE DRUGS [Concomitant]
     Indication: PRURITUS
     Dosage: WAL-DRYL ALLERGY 25MG TABLETS
  10. CORTIZONE 10 [Concomitant]
     Indication: PRURITUS
     Route: 061
  11. VITAMIN D [Concomitant]
     Dosage: GEL CAPS
  12. FENTANYL-100 [Suspect]
     Indication: PAIN
     Dosage: Q72H
     Route: 062
     Dates: start: 20060101, end: 20101230
  13. CLOBETASOL [Concomitant]
     Indication: PRURITUS
     Route: 061
  14. FENTANYL-100 [Suspect]
     Indication: FIBROMYALGIA
     Dosage: Q72H
     Route: 062
     Dates: start: 20060101, end: 20101230
  15. PERCOCET [Concomitant]
     Indication: PAIN
     Dosage: 10MG/325MG
     Route: 048
     Dates: start: 20051201
  16. ASCORBIC ACID [Concomitant]
  17. DICLOFENAC SODIUM [Concomitant]
     Indication: PAIN
  18. DEXTROAMPHETAMINE [Concomitant]
     Indication: FATIGUE

REACTIONS (8)
  - BACK PAIN [None]
  - SKIN BURNING SENSATION [None]
  - HYPERHIDROSIS [None]
  - DRUG HYPERSENSITIVITY [None]
  - HYPERSENSITIVITY [None]
  - PRURITUS GENERALISED [None]
  - DRUG INEFFECTIVE [None]
  - FEELING HOT [None]
